FAERS Safety Report 6832741-0 (Version None)
Quarter: 2010Q3

REPORT INFORMATION
  Report Type: 
  Country: None (occurrence: None)
  Receive Date: 20100712
  Receipt Date: 20100706
  Transmission Date: 20110219
  Serious: Yes (Death, Other)
  Sender: FDA-Public Use
  Company Number: US-ASTRAZENECA-2010SE31289

PATIENT
  Age: 21 Year
  Sex: Male

DRUGS (3)
  1. SEROQUEL XR [Suspect]
     Route: 048
  2. TEMAZEPAM [Suspect]
  3. BENADRYL [Suspect]

REACTIONS (2)
  - COMPLETED SUICIDE [None]
  - INTENTIONAL OVERDOSE [None]
